FAERS Safety Report 4676733-9 (Version None)
Quarter: 2005Q2

REPORT INFORMATION
  Report Type: 
  Country: None (occurrence: None)
  Receive Date: 20050527
  Receipt Date: 20050518
  Transmission Date: 20051028
  Serious: Yes (Hospitalization)
  Sender: FDA-Public Use
  Company Number: US-ABBOTT-05P-163-0301053-00

PATIENT
  Sex: Female

DRUGS (2)
  1. DIVALPROEX SODIUM [Suspect]
     Indication: ACUTE MYELOID LEUKAEMIA
     Dosage: 10 MG/KG/DAY
     Route: 048
     Dates: start: 20050307
  2. DIVALPROEX SODIUM [Suspect]
     Dosage: 60 MG/KG/DAY
     Route: 048
     Dates: start: 20050509

REACTIONS (5)
  - BACTERIAL INFECTION [None]
  - CONFUSIONAL STATE [None]
  - PYREXIA [None]
  - SEDATION [None]
  - SOMNOLENCE [None]
